FAERS Safety Report 11237213 (Version 1)
Quarter: 2015Q3

REPORT INFORMATION
  Report Type: Spontaneous
  Country: US (occurrence: US)
  Receive Date: 20150703
  Receipt Date: 20150703
  Transmission Date: 20151125
  Serious: No
  Sender: FDA-Public Use
  Company Number: US-009507513-1507USA000718

PATIENT
  Sex: Female

DRUGS (2)
  1. SYLATRON [Suspect]
     Active Substance: PEGINTERFERON ALFA-2B
     Dosage: CORRECTLY DOSE/ ONCE PER WEEK
     Route: 058
     Dates: start: 201506
  2. SYLATRON [Suspect]
     Active Substance: PEGINTERFERON ALFA-2B
     Indication: MALIGNANT MELANOMA
     Dosage: HIGHER THAN RECOMMENDED DOSE/ ONCE PER WEEK
     Route: 058
     Dates: end: 201506

REACTIONS (3)
  - Product preparation error [Unknown]
  - Accidental overdose [Unknown]
  - Hepatic enzyme increased [Unknown]

NARRATIVE: CASE EVENT DATE: 20150616
